FAERS Safety Report 7506169-4 (Version None)
Quarter: 2011Q2

REPORT INFORMATION
  Report Type: 
  Country: None (occurrence: None)
  Receive Date: 20110526
  Receipt Date: 20110523
  Transmission Date: 20111010
  Serious: No
  Sender: FDA-Public Use
  Company Number: US-PFIZER INC-2011111577

PATIENT
  Sex: Male

DRUGS (1)
  1. ADVIL LIQUI-GELS [Suspect]
     Indication: NASOPHARYNGITIS
     Dosage: 200 MG, DAILY
     Dates: start: 20110518, end: 20110521

REACTIONS (2)
  - EYE SWELLING [None]
  - BLISTER [None]
